FAERS Safety Report 6989031-5 (Version None)
Quarter: 2010Q3

REPORT INFORMATION
  Report Type: 
  Country: None (occurrence: None)
  Receive Date: 20100916
  Receipt Date: 20091029
  Transmission Date: 20110219
  Serious: Yes (Other)
  Sender: FDA-Public Use
  Company Number: US-PFIZER INC-2009227641

PATIENT

DRUGS (1)
  1. LYRICA [Suspect]

REACTIONS (1)
  - ANAPHYLACTIC REACTION [None]
